FAERS Safety Report 24153610 (Version 2)
Quarter: 2024Q3

REPORT INFORMATION
  Report Type: Spontaneous
  Country: US (occurrence: US)
  Receive Date: 20240730
  Receipt Date: 20240801
  Transmission Date: 20241017
  Serious: Yes (Hospitalization)
  Sender: BIOMARIN
  Company Number: US-BIOMARINAP-US-2024-159473

PATIENT

DRUGS (4)
  1. NAGLAZYME [Suspect]
     Active Substance: GALSULFASE
     Indication: Mucopolysaccharidosis VI
     Dosage: 60 MILLIGRAM, QW
     Route: 042
     Dates: start: 201511
  2. NAGLAZYME [Suspect]
     Active Substance: GALSULFASE
     Dosage: 60 MILLIGRAM, QW
     Route: 042
     Dates: start: 201209
  3. HEPARIN [Concomitant]
     Active Substance: HEPARIN SODIUM
     Indication: Product used for unknown indication
  4. LIDOCAINE AND PRILOCAINE [Concomitant]
     Active Substance: LIDOCAINE\PRILOCAINE
     Indication: Product used for unknown indication

REACTIONS (2)
  - Inguinal hernia [Recovered/Resolved]
  - Ear tube insertion [Recovered/Resolved]

NARRATIVE: CASE EVENT DATE: 20240423
